FAERS Safety Report 14195557 (Version 1)
Quarter: 2017Q4

REPORT INFORMATION
  Report Type: Spontaneous
  Country: SI (occurrence: SI)
  Receive Date: 20171116
  Receipt Date: 20171116
  Transmission Date: 20180321
  Serious: Yes (Other)
  Sender: FDA-Public Use
  Company Number: SI-TOLMAR, INC.-2017SI015640

PATIENT
  Sex: Male

DRUGS (1)
  1. ELIGARD [Suspect]
     Active Substance: LEUPROLIDE ACETATE
     Indication: PROSTATE CANCER
     Dosage: 1 DF, EVERY 6 MONTHS
     Route: 065
     Dates: start: 20170307

REACTIONS (2)
  - Polymyalgia rheumatica [Unknown]
  - Gait inability [Unknown]

NARRATIVE: CASE EVENT DATE: 201705
